FAERS Safety Report 19266356 (Version 1)
Quarter: 2021Q2

REPORT INFORMATION
  Report Type: Spontaneous
  Country: AU (occurrence: AU)
  Receive Date: 20210518
  Receipt Date: 20210518
  Transmission Date: 20210717
  Serious: Yes (Other)
  Sender: FDA-Public Use
  Company Number: AU-ABBVIE-21K-008-3908670-00

PATIENT
  Age: 64 Year
  Sex: Male

DRUGS (2)
  1. DABIGATRAN [Concomitant]
     Active Substance: DABIGATRAN
     Indication: PRODUCT USED FOR UNKNOWN INDICATION
  2. IBRUTINIB [Suspect]
     Active Substance: IBRUTINIB
     Indication: WALDENSTROM^S MACROGLOBULINAEMIA
     Route: 065

REACTIONS (7)
  - Fatigue [Unknown]
  - Penile cancer [Unknown]
  - Dyspnoea [Unknown]
  - Hyperviscosity syndrome [Unknown]
  - Haemoptysis [Unknown]
  - Atrial fibrillation [Unknown]
  - Therapeutic product effect incomplete [Unknown]
